FAERS Safety Report 6371290-3 (Version None)
Quarter: 2009Q3

REPORT INFORMATION
  Report Type: 
  Country: None (occurrence: None)
  Receive Date: 20090923
  Receipt Date: 20090915
  Transmission Date: 20100115
  Serious: Yes (Other)
  Sender: FDA-Public Use
  Company Number: US-JNJFOC-20090905579

PATIENT
  Age: 60 Year
  Sex: Male
  Weight: 106.6 kg

DRUGS (7)
  1. NEUTROGENA T/GEL THERAPEUTIC SHAMPOO ORIGINAL FORMULA [Suspect]
     Indication: DRUG USE FOR UNKNOWN INDICATION
     Route: 061
  2. ASPIRIN [Concomitant]
  3. HYZAAR [Concomitant]
     Dosage: 100/12.5 MG
  4. FOLIC ACID [Concomitant]
  5. CITALOPRAM [Concomitant]
  6. CARVEDILOL [Concomitant]
  7. LIPITOR [Concomitant]

REACTIONS (4)
  - DRY SKIN [None]
  - HYPOAESTHESIA ORAL [None]
  - PRODUCT TAMPERING [None]
  - PRODUCT TASTE ABNORMAL [None]
